FAERS Safety Report 4728596-0 (Version None)
Quarter: 2005Q3

REPORT INFORMATION
  Report Type: 
  Country: None (occurrence: None)
  Receive Date: 20050729
  Receipt Date: 20050722
  Transmission Date: 20060218
  Serious: Yes (Other)
  Sender: FDA-Public Use
  Company Number: PHRM2005FR02148

PATIENT
  Age: 45 Year
  Sex: Female

DRUGS (1)
  1. GLEEVEC [Suspect]
     Indication: GASTROINTESTINAL STROMAL TUMOUR
     Dosage: 400 MG, QD
     Route: 048
     Dates: start: 20040101, end: 20050601

REACTIONS (3)
  - BLOOD ALKALINE PHOSPHATASE INCREASED [None]
  - HEPATITIS [None]
  - TRANSAMINASES INCREASED [None]
